FAERS Safety Report 25032404 (Version 1)
Quarter: 2025Q1

REPORT INFORMATION
  Report Type: Spontaneous
  Country: IN (occurrence: IN)
  Receive Date: 20250303
  Receipt Date: 20250303
  Transmission Date: 20250408
  Serious: Yes (Other)
  Sender: VERITY PHARMACEUTICALS INC.
  Company Number: IN-VER-202500001

PATIENT
  Age: 69 Year
  Sex: Male

DRUGS (2)
  1. TRIPTORELIN [Suspect]
     Active Substance: TRIPTORELIN
     Indication: Prostate cancer
     Route: 065
  2. BICALUTAMIDE [Concomitant]
     Active Substance: BICALUTAMIDE
     Indication: Product used for unknown indication
     Route: 065

REACTIONS (2)
  - Drug ineffective [Unknown]
  - Disease progression [Unknown]
